FAERS Safety Report 23001830 (Version 3)
Quarter: 2023Q4

REPORT INFORMATION
  Report Type: Report from Study
  Country: US (occurrence: US)
  Receive Date: 20230928
  Receipt Date: 20231117
  Transmission Date: 20240110
  Serious: No
  Sender: FDA-Public Use
  Company Number: US-002147023-NVSC2023US208124

PATIENT
  Age: 49 Year
  Sex: Female
  Weight: 61.224 kg

DRUGS (2)
  1. COSENTYX [Suspect]
     Active Substance: SECUKINUMAB
     Indication: Psoriatic arthropathy
     Dosage: 300 MG, QW (300 MG ONCE A WEEK FOR THE LOADING DOSE)
     Route: 058
     Dates: start: 20230822, end: 20230912
  2. COSENTYX [Suspect]
     Active Substance: SECUKINUMAB
     Indication: Psoriasis

REACTIONS (13)
  - Musculoskeletal stiffness [Unknown]
  - Haemangioma of skin [Unknown]
  - Macule [Unknown]
  - Papule [Unknown]
  - Seborrhoeic keratosis [Unknown]
  - Skin discolouration [Unknown]
  - Psoriasis [Unknown]
  - Rash [Unknown]
  - Skin exfoliation [Unknown]
  - Rash pruritic [Unknown]
  - Rash erythematous [Unknown]
  - Skin plaque [Unknown]
  - Therapeutic product effect incomplete [Unknown]

NARRATIVE: CASE EVENT DATE: 20230917
